FAERS Safety Report 18684131 (Version 1)
Quarter: 2020Q4

REPORT INFORMATION
  Report Type: Spontaneous
  Country: US (occurrence: US)
  Receive Date: 20201230
  Receipt Date: 20201230
  Transmission Date: 20210114
  Serious: Yes (Hospitalization, Other)
  Sender: FDA-Public Use
  Company Number: US-009507513-2012USA011672

PATIENT
  Age: 27 Year
  Sex: Male

DRUGS (1)
  1. PROSCAR [Suspect]
     Active Substance: FINASTERIDE
     Dosage: UNK
     Route: 048
     Dates: start: 2018

REACTIONS (13)
  - Gait inability [Unknown]
  - Fear [Unknown]
  - Fall [Unknown]
  - Post 5-alpha-reductase inhibitor syndrome [Unknown]
  - Dry skin [Unknown]
  - Dry eye [Unknown]
  - Hypoaesthesia [Unknown]
  - Neuropathy peripheral [Unknown]
  - Vision blurred [Unknown]
  - Photophobia [Unknown]
  - Weight decreased [Unknown]
  - Body dysmorphic disorder [Unknown]
  - Cerebral disorder [Unknown]

NARRATIVE: CASE EVENT DATE: 2018
